FAERS Safety Report 5095316-2 (Version None)
Quarter: 2006Q3

REPORT INFORMATION
  Report Type: 
  Country: None (occurrence: None)
  Receive Date: 20060830
  Receipt Date: 20060816
  Transmission Date: 20061208
  Serious: Yes (Hospitalization, Other)
  Sender: FDA-Public Use
  Company Number: US-2006-015041

PATIENT
  Age: 63 Year
  Sex: Female
  Weight: 82 kg

DRUGS (16)
  1. BETASERON [Suspect]
     Indication: RELAPSING-REMITTING MULTIPLE SCLEROSIS
     Dosage: 8 MIU, SUBCUTANEOUS
     Route: 058
     Dates: start: 20060426, end: 20060609
  2. COUNMADIN/WARFARIN (WARFARIN) TABLET [Suspect]
     Dosage: 2.5 MG, 1 X/DAY M-F, 5X/WEEK, ORAL
     Route: 048
     Dates: end: 20060607
  3. AMBIEN [Concomitant]
  4. DIGITEK (DIGOXIN) TABLET [Concomitant]
  5. DIOVAN [Concomitant]
  6. SYNTEST (METHYLTESTOSTERONE, ESTROGENS ESTERIFIED) TABLET [Concomitant]
  7. HYDROCHLOROTHIAZIDE [Concomitant]
  8. KLOR-CON [Concomitant]
  9. LIPITOR [Concomitant]
  10. PAXIL [Concomitant]
  11. TOPROL-XL [Concomitant]
  12. ESTRACE VAGINAL CREAM 0.1MG/GM CREAM [Concomitant]
  13. ATROVENT (IPRATROPIUM BROMIDE) SPRAY [Concomitant]
  14. FLONASE 0.05% (FLUTICASONE PROPIONATE) SPRAY [Concomitant]
  15. OMEPRAZOLE [Concomitant]
  16. ALLEGRA [Concomitant]

REACTIONS (22)
  - ABDOMINAL DISTENSION [None]
  - ANAEMIA [None]
  - BACK PAIN [None]
  - BLOOD ALBUMIN DECREASED [None]
  - BLOOD CALCIUM DECREASED [None]
  - BLOOD POTASSIUM DECREASED [None]
  - BLOOD SODIUM DECREASED [None]
  - CHOLECYSTITIS CHRONIC [None]
  - DUODENITIS [None]
  - FLATULENCE [None]
  - GALLBLADDER DISORDER [None]
  - GASTROINTESTINAL OEDEMA [None]
  - INTERNATIONAL NORMALISED RATIO INCREASED [None]
  - INTERVERTEBRAL DISC DEGENERATION [None]
  - NAUSEA [None]
  - OEDEMATOUS PANCREATITIS [None]
  - PANCREATIC HAEMORRHAGE [None]
  - PLEURAL EFFUSION [None]
  - PROTHROMBIN TIME PROLONGED [None]
  - SPINAL OSTEOARTHRITIS [None]
  - URINARY TRACT INFECTION [None]
  - WHITE BLOOD CELL COUNT INCREASED [None]
